FAERS Safety Report 22280705 (Version 1)
Quarter: 2023Q2

REPORT INFORMATION
  Report Type: Spontaneous
  Country: US (occurrence: US)
  Receive Date: 20230503
  Receipt Date: 20230503
  Transmission Date: 20230722
  Serious: Yes (Other)
  Sender: FDA-Public Use
  Company Number: US-UNITED THERAPEUTICS-UNT-2023-012095

PATIENT
  Age: 54 Year

DRUGS (1)
  1. REMODULIN [Suspect]
     Active Substance: TREPROSTINIL
     Indication: Product used for unknown indication
     Dosage: UNK, CONTINUING
     Route: 058

REACTIONS (6)
  - Coronary artery occlusion [Unknown]
  - Hypertension [Unknown]
  - Peripheral swelling [Unknown]
  - Abdominal distension [Unknown]
  - Swelling [Unknown]
  - Treatment noncompliance [Unknown]
